FAERS Safety Report 6680995-6 (Version None)
Quarter: 2010Q2

REPORT INFORMATION
  Report Type: 
  Country: None (occurrence: None)
  Receive Date: 20100414
  Receipt Date: 20100401
  Transmission Date: 20101027
  Serious: Yes (Hospitalization, Other)
  Sender: FDA-Public Use
  Company Number: US-BAYER-201017129NA

PATIENT
  Age: 56 Year
  Sex: Male

DRUGS (3)
  1. BETASERON [Suspect]
     Indication: MULTIPLE SCLEROSIS
     Dosage: TOTAL DAILY DOSE: 8 MIU
     Route: 058
     Dates: start: 20100130, end: 20100314
  2. KEPPRA [Concomitant]
     Route: 065
  3. DILANTIN [Concomitant]
     Route: 065

REACTIONS (5)
  - APHASIA [None]
  - COGNITIVE DISORDER [None]
  - CONFUSIONAL STATE [None]
  - SPEECH DISORDER [None]
  - STATUS EPILEPTICUS [None]
